FAERS Safety Report 4757245-0 (Version None)
Quarter: 2005Q3

REPORT INFORMATION
  Report Type: 
  Country: None (occurrence: None)
  Receive Date: 20050829
  Receipt Date: 20050818
  Transmission Date: 20060218
  Serious: Yes (Hospitalization, Other)
  Sender: FDA-Public Use
  Company Number: HQWYE002318AUG05

PATIENT
  Age: 92 Year
  Sex: Female

DRUGS (5)
  1. INIPOMP (PANTOPRAZOLE, TABLET, DELAYED RELEASE) [Suspect]
     Dosage: 20 MG 1X PER 1 DAY, ORAL
     Route: 048
     Dates: end: 20050628
  2. AMLODIPINE BESYLATE [Concomitant]
  3. KARDEGIC (ACETYLSALICYLATE LYSINE) [Concomitant]
  4. CORVASAL (MOLSIDOMINE) [Concomitant]
  5. SECTRAL [Concomitant]

REACTIONS (2)
  - DISORIENTATION [None]
  - HYPONATRAEMIA [None]
